FAERS Safety Report 5591098-6 (Version None)
Quarter: 2008Q1

REPORT INFORMATION
  Report Type: 
  Country: None (occurrence: None)
  Receive Date: 20080115
  Receipt Date: 20080107
  Transmission Date: 20080703
  Serious: Yes (Other)
  Sender: FDA-Public Use
  Company Number: PHRM2008FR00533

PATIENT
  Sex: Female
  Weight: 50 kg

DRUGS (1)
  1. EXJADE [Suspect]
     Indication: IRON OVERLOAD
     Dosage: 30 MG/KG, QD
     Route: 048
     Dates: start: 20070105, end: 20071201

REACTIONS (3)
  - BLOOD CREATININE INCREASED [None]
  - HYPERKALIURIA [None]
  - HYPOKALAEMIA [None]
